FAERS Safety Report 7579295-1 (Version None)
Quarter: 2011Q2

REPORT INFORMATION
  Report Type: 
  Country: None (occurrence: None)
  Receive Date: 20110628
  Receipt Date: 20110618
  Transmission Date: 20111010
  Serious: Yes (Other)
  Sender: FDA-Public Use
  Company Number: US-BAYER-2011-053481

PATIENT

DRUGS (6)
  1. ALEVE (CAPLET) [Suspect]
     Dosage: COUNT SIZE NOT REPORTED
     Route: 048
  2. TYLENOL-500 [Concomitant]
     Route: 048
  3. NYQUIL [Concomitant]
     Route: 048
  4. ADVIL LIQUI-GELS [Concomitant]
  5. ASPIRIN [Suspect]
     Dosage: COUNT SIZE NOT SPECIFIED
     Route: 048
  6. DAYQUIL [DEXTROMET HBR,PARACET,PSEUDOEPH HCL] [Concomitant]

REACTIONS (1)
  - NO ADVERSE EVENT [None]
